FAERS Safety Report 14301869 (Version 1)
Quarter: 2017Q4

REPORT INFORMATION
  Report Type: Spontaneous
  Country: US (occurrence: US)
  Receive Date: 20171219
  Receipt Date: 20171219
  Transmission Date: 20180321
  Serious: Yes (Hospitalization)
  Sender: FDA-Public Use
  Company Number: US-JNJFOC-20171221025

PATIENT
  Sex: Female

DRUGS (5)
  1. LINEZOLID. [Suspect]
     Active Substance: LINEZOLID
     Indication: MYCOBACTERIUM ABSCESSUS INFECTION
     Route: 065
  2. CLOFAZIMINE [Suspect]
     Active Substance: CLOFAZIMINE
     Indication: MYCOBACTERIUM ABSCESSUS INFECTION
     Route: 065
     Dates: start: 2017, end: 201712
  3. MEROPENEM. [Suspect]
     Active Substance: MEROPENEM
     Indication: MYCOBACTERIUM ABSCESSUS INFECTION
     Route: 065
     Dates: start: 201711, end: 201712
  4. SIRTURO [Suspect]
     Active Substance: BEDAQUILINE FUMARATE
     Indication: MYCOBACTERIUM ABSCESSUS INFECTION
     Route: 048
     Dates: start: 201711
  5. AMIKACIN [Suspect]
     Active Substance: AMIKACIN
     Indication: MYCOBACTERIUM ABSCESSUS INFECTION
     Route: 065
     Dates: start: 201711, end: 201712

REACTIONS (5)
  - Respiratory failure [Recovered/Resolved]
  - Drug dose omission [Unknown]
  - Product use in unapproved indication [Unknown]
  - Off label use [Unknown]
  - Gastric ulcer perforation [Unknown]

NARRATIVE: CASE EVENT DATE: 201711
